FAERS Safety Report 16947012 (Version 3)
Quarter: 2019Q4

REPORT INFORMATION
  Report Type: Spontaneous
  Country: US (occurrence: US)
  Receive Date: 20191022
  Receipt Date: 20191219
  Transmission Date: 20200122
  Serious: No
  Sender: FDA-Public Use
  Company Number: US-PFIZER INC-2019453075

PATIENT
  Age: 67 Year
  Sex: Female
  Weight: 65.76 kg

DRUGS (2)
  1. RELPAX [Suspect]
     Active Substance: ELETRIPTAN HYDROBROMIDE
     Dosage: UNK, AS NEEDED
  2. RELPAX [Suspect]
     Active Substance: ELETRIPTAN HYDROBROMIDE
     Dosage: 40 MG, AS NEEDED [ONCE AS NEEDED (PRN) FOR UPTO 1 DOSE. MAY REPEAT IN 2 HOURS IF NECESSARY]
     Route: 048
     Dates: start: 20191216

REACTIONS (2)
  - Speech disorder [Unknown]
  - Pharyngitis streptococcal [Unknown]

NARRATIVE: CASE EVENT DATE: 2019
